FAERS Safety Report 9707210 (Version 1)
Quarter: 2013Q4

REPORT INFORMATION
  Report Type: Spontaneous
  Country: TH (occurrence: TH)
  Receive Date: 20131125
  Receipt Date: 20131125
  Transmission Date: 20140711
  Serious: Yes (Hospitalization)
  Sender: FDA-Public Use
  Company Number: TH-MYLANLABS-2013S1025720

PATIENT
  Age: 42 Year
  Sex: Female

DRUGS (3)
  1. METHOTREXATE [Suspect]
     Indication: ECTOPIC PREGNANCY
     Dosage: 50 MG/M2 (4 DOSES)
     Route: 030
  2. FOLINIC ACID [Suspect]
     Indication: ECTOPIC PREGNANCY
     Dosage: 5MG DAILY (4 DOSES)
     Route: 048
  3. POTASSIUM CHLORIDE [Concomitant]
     Indication: ECTOPIC PREGNANCY
     Route: 050

REACTIONS (6)
  - Vaginal haemorrhage [Recovered/Resolved]
  - Hypovolaemic shock [Recovered/Resolved]
  - Renal tubular necrosis [Recovered/Resolved]
  - Disseminated intravascular coagulation [Recovered/Resolved]
  - Nausea [Unknown]
  - Gastritis [Unknown]
